FAERS Safety Report 11330726 (Version 1)
Quarter: 2015Q3

REPORT INFORMATION
  Report Type: Spontaneous
  Country: US (occurrence: US)
  Receive Date: 20150803
  Receipt Date: 20150803
  Transmission Date: 20151125
  Serious: No
  Sender: FDA-Public Use
  Company Number: US-ASTRAZENECA-2015SE71955

PATIENT
  Sex: Female
  Weight: 72.6 kg

DRUGS (14)
  1. HUMALOG [Concomitant]
     Active Substance: INSULIN LISPRO
  2. BYETTA [Suspect]
     Active Substance: EXENATIDE
     Indication: TYPE 2 DIABETES MELLITUS
     Route: 065
  3. LANTUS [Concomitant]
     Active Substance: INSULIN GLARGINE
  4. CARVEDILOL. [Concomitant]
     Active Substance: CARVEDILOL
  5. BABY ASPIRIN [Concomitant]
     Active Substance: ASPIRIN
  6. BYDUREON [Suspect]
     Active Substance: EXENATIDE
     Indication: TYPE 2 DIABETES MELLITUS
     Route: 058
  7. COUMADIN [Concomitant]
     Active Substance: WARFARIN SODIUM
  8. CYMBALTA [Concomitant]
     Active Substance: DULOXETINE HYDROCHLORIDE
  9. VICTOZA [Concomitant]
     Active Substance: LIRAGLUTIDE
  10. GABAPENTIN. [Concomitant]
     Active Substance: GABAPENTIN
  11. FARXIGA [Suspect]
     Active Substance: DAPAGLIFLOZIN PROPANEDIOL
     Indication: TYPE 2 DIABETES MELLITUS
     Route: 048
  12. METFORMIN [Concomitant]
     Active Substance: METFORMIN HYDROCHLORIDE
  13. LASIX [Concomitant]
     Active Substance: FUROSEMIDE
  14. ATROVASTATIN [Concomitant]
     Active Substance: ATORVASTATIN CALCIUM

REACTIONS (2)
  - Underdose [Unknown]
  - Nausea [Unknown]
